FAERS Safety Report 8556536-5 (Version None)
Quarter: 2012Q3

REPORT INFORMATION
  Report Type: 
  Country: None (occurrence: None)
  Receive Date: 20120801
  Receipt Date: 20120726
  Transmission Date: 20120928
  Serious: Yes (Life-Threatening, Hospitalization, Other)
  Sender: FDA-Public Use
  Company Number: US-MSD-1207USA012562

PATIENT

DRUGS (3)
  1. KLONOPIN [Concomitant]
  2. SAPHRIS [Suspect]
     Indication: SCHIZOPHRENIA
     Dosage: 5 MG, BID
     Dates: start: 20120701, end: 20120701
  3. LITHIUM CARBONATE [Concomitant]

REACTIONS (1)
  - STEVENS-JOHNSON SYNDROME [None]
